FAERS Safety Report 9782205 (Version 3)
Quarter: 2014Q1

REPORT INFORMATION
  Report Type: Report from Study
  Country: JP (occurrence: JP)
  Receive Date: 20131226
  Receipt Date: 20140306
  Transmission Date: 20141002
  Serious: Yes (Death)
  Sender: FDA-Public Use
  Company Number: JP-AMGEN-JPNCT2013090378

PATIENT
  Age: 81 Year
  Sex: Female
  Weight: 41 kg

DRUGS (10)
  1. DARBEPOETIN ALFA [Suspect]
     Indication: NEPHROGENIC ANAEMIA
     Dosage: 120 MUG, UNK
     Route: 058
     Dates: start: 20111208, end: 20130815
  2. PARIET [Concomitant]
     Dosage: UNK
     Route: 048
  3. MEVALOTIN [Concomitant]
     Dosage: UNK
     Route: 048
  4. KALIAID [Concomitant]
     Dosage: UNK
     Route: 048
  5. BIASAN [Concomitant]
     Indication: PRE-ECLAMPSIA
     Dosage: UNK
     Route: 048
  6. FERROMIA [Concomitant]
     Dosage: UNK
     Route: 048
  7. NU-LOTAN [Concomitant]
     Dosage: UNK
     Route: 048
  8. DEPAS [Concomitant]
     Dosage: UNK
     Route: 048
  9. POSTERISAN                         /00028601/ [Concomitant]
     Dosage: UNK
     Route: 061
  10. ALOSENN                            /00476901/ [Concomitant]
     Dosage: UNK
     Route: 048

REACTIONS (1)
  - Cerebral haemorrhage [Fatal]
